FAERS Safety Report 25416854 (Version 2)
Quarter: 2025Q2

REPORT INFORMATION
  Report Type: Spontaneous
  Country: US (occurrence: US)
  Receive Date: 20250610
  Receipt Date: 20250624
  Transmission Date: 20250717
  Serious: Yes (Death, Hospitalization, Other)
  Sender: MACLEODS
  Company Number: US-MACLEODS PHARMA-MAC2025053403

PATIENT

DRUGS (3)
  1. ZONISAMIDE [Suspect]
     Active Substance: ZONISAMIDE
     Indication: Weight decreased
     Route: 065
     Dates: start: 20230614
  2. ZONISAMIDE [Suspect]
     Active Substance: ZONISAMIDE
     Route: 065
  3. ZONISAMIDE [Suspect]
     Active Substance: ZONISAMIDE
     Route: 065
     Dates: end: 20230705

REACTIONS (9)
  - Pneumonia necrotising [Fatal]
  - Hodgkin^s disease [Fatal]
  - Respiratory failure [Fatal]
  - Septic shock [Unknown]
  - Drug-induced liver injury [Unknown]
  - Vanishing bile duct syndrome [Unknown]
  - Cholestasis [Unknown]
  - Off label use [Unknown]
  - Drug reaction with eosinophilia and systemic symptoms [Unknown]

NARRATIVE: CASE EVENT DATE: 20230712
